FAERS Safety Report 18033333 (Version 1)
Quarter: 2020Q3

REPORT INFORMATION
  Report Type: Spontaneous
  Country: US (occurrence: US)
  Receive Date: 20200716
  Receipt Date: 20200716
  Transmission Date: 20201103
  Serious: No
  Sender: FDA-Public Use
  Company Number: US-PFIZER INC-2019313405

PATIENT
  Age: 76 Year
  Sex: Male
  Weight: 77.11 kg

DRUGS (2)
  1. SILDENAFIL CITRATE. [Suspect]
     Active Substance: SILDENAFIL CITRATE
     Indication: ERECTILE DYSFUNCTION
     Dosage: UNK (REPORTED AS 1/2 TO 1 TAB), AS NEEDED (30 MIN. PRIOR TO SEXUAL INTERCOURSE)
     Route: 048
  2. SILDENAFIL CITRATE. [Suspect]
     Active Substance: SILDENAFIL CITRATE
     Dosage: UNK (REPORTED AS 1/2 TO 1 TAB), AS NEEDED (30 MIN. PRIOR TO SEXUAL INTERCOURSE)
     Route: 048
     Dates: start: 2020

REACTIONS (2)
  - Headache [Unknown]
  - Drug ineffective [Unknown]
